FAERS Safety Report 14010268 (Version 1)
Quarter: 2017Q3

REPORT INFORMATION
  Report Type: Report from Study
  Country: None (occurrence: US)
  Receive Date: 20170926
  Receipt Date: 20170926
  Transmission Date: 20171128
  Serious: Yes (Other)
  Sender: FDA-Public Use
  Company Number: US-ABBVIE-16K-163-1740107-00

PATIENT
  Age: 21 Year
  Sex: Female

DRUGS (2)
  1. HUMIRA [Suspect]
     Active Substance: ADALIMUMAB
     Indication: PSORIASIS
     Dosage: DAY 1
     Route: 058
     Dates: start: 20160728, end: 20160728
  2. HUMIRA [Suspect]
     Active Substance: ADALIMUMAB
     Indication: PSORIASIS
     Dosage: DAY 8 AND AFTERWARDS
     Route: 058
     Dates: start: 20160804

REACTIONS (19)
  - Hallucination [Recovering/Resolving]
  - Anger [Not Recovered/Not Resolved]
  - Device issue [Unknown]
  - Incorrect dose administered [Unknown]
  - Injection site urticaria [Recovering/Resolving]
  - Injection site bruising [Not Recovered/Not Resolved]
  - Injection site swelling [Unknown]
  - Amnesia [Recovering/Resolving]
  - Muscle spasms [Unknown]
  - Visual impairment [Recovering/Resolving]
  - Impaired quality of life [Unknown]
  - Frustration tolerance decreased [Recovered/Resolved]
  - General physical condition abnormal [Recovered/Resolved]
  - Helplessness [Unknown]
  - Emotional distress [Recovered/Resolved]
  - Dysphagia [Recovering/Resolving]
  - Pneumonia [Unknown]
  - Drug hypersensitivity [Recovering/Resolving]
  - Psoriasis [Unknown]

NARRATIVE: CASE EVENT DATE: 2016
